FAERS Safety Report 4999317-1 (Version None)
Quarter: 2006Q2

REPORT INFORMATION
  Report Type: 
  Country: None (occurrence: None)
  Receive Date: 20060509
  Receipt Date: 20060509
  Transmission Date: 20061013
  Serious: No
  Sender: FDA-Public Use
  Company Number: None

PATIENT
  Age: 53 Year
  Sex: Female

DRUGS (1)
  1. TYGACIL [Suspect]
     Indication: CELLULITIS
     Dosage: 50MG  Q12H    IV
     Route: 042
     Dates: start: 20060507, end: 20060508

REACTIONS (3)
  - NAUSEA [None]
  - RETCHING [None]
  - VOMITING [None]
